FAERS Safety Report 18559452 (Version 2)
Quarter: 2020Q4

REPORT INFORMATION
  Report Type: Spontaneous
  Country: US (occurrence: US)
  Receive Date: 20201130
  Receipt Date: 20201202
  Transmission Date: 20210114
  Serious: No
  Sender: FDA-Public Use
  Company Number: US-PFIZER INC-2020468405

PATIENT
  Age: 69 Year
  Sex: Female
  Weight: 66.21 kg

DRUGS (10)
  1. GARLIC (DEODORIZED) [Concomitant]
     Dosage: UNK
  2. LETROZOLE. [Concomitant]
     Active Substance: LETROZOLE
     Dosage: 2.5 MG
  3. MUCINEX [Concomitant]
     Active Substance: GUAIFENESIN
     Dosage: 600 MG
  4. TYLENOL [Concomitant]
     Active Substance: ACETAMINOPHEN
     Dosage: UNK
  5. IBRANCE [Suspect]
     Active Substance: PALBOCICLIB
     Indication: BREAST CANCER FEMALE
     Dosage: 75 MG, CYCLIC (1 DAILY FOR 21 DAYS)
     Route: 048
     Dates: start: 20180212
  6. ZARXIO [Concomitant]
     Active Substance: FILGRASTIM-SNDZ
     Dosage: UNK
  7. MILK OF MAGNESIA [Concomitant]
     Active Substance: MAGNESIUM HYDROXIDE
     Dosage: 400 MG
  8. CLARINEX [Concomitant]
     Active Substance: DESLORATADINE
     Dosage: 5 MG
  9. IBRANCE [Suspect]
     Active Substance: PALBOCICLIB
     Dosage: 75 MG, CYCLICV (1 DAILY FOR 21 DAYS)
     Route: 048
     Dates: start: 20201123
  10. PROBIOTIC ACIDOPHILUS [LACTOBACILLUS ACIDOPHILUS] [Concomitant]
     Dosage: UNK (300MM-2)

REACTIONS (9)
  - Infection [Unknown]
  - Lip pain [Unknown]
  - Off label use [Unknown]
  - Sleep disorder [Unknown]
  - Glossodynia [Unknown]
  - Stomatitis [Unknown]
  - Gingival swelling [Unknown]
  - Product use issue [Unknown]
  - Swollen tongue [Unknown]
